FAERS Safety Report 5816638-0 (Version None)
Quarter: 2008Q3

REPORT INFORMATION
  Report Type: 
  Country: None (occurrence: None)
  Receive Date: 20080721
  Receipt Date: 20080709
  Transmission Date: 20090109
  Serious: Yes (Other)
  Sender: FDA-Public Use
  Company Number: US-PFIZER INC-2008057164

PATIENT
  Sex: Female
  Weight: 68 kg

DRUGS (2)
  1. CLEOCIN PHOSPHATE S.S. SOLUTION, STERILE [Suspect]
     Indication: ABSCESS
     Route: 042
  2. CLEOCIN HCL CAPSULE [Suspect]
     Indication: ABSCESS
     Dosage: DAILY DOSE:450MG
     Route: 048
     Dates: start: 20080101, end: 20080101

REACTIONS (5)
  - ABDOMINAL PAIN [None]
  - DIARRHOEA [None]
  - DRUG INEFFECTIVE [None]
  - HAEMATOCHEZIA [None]
  - NAUSEA [None]
